FAERS Safety Report 20438262 (Version 1)
Quarter: 2022Q1

REPORT INFORMATION
  Report Type: Spontaneous
  Country: US (occurrence: US)
  Receive Date: 20220207
  Receipt Date: 20220207
  Transmission Date: 20220423
  Serious: Yes (Hospitalization)
  Sender: FDA-Public Use
  Company Number: US-MYLANLABS-2022M1010971

PATIENT
  Age: 70 Year
  Sex: Female

DRUGS (2)
  1. CARBOPLATIN [Suspect]
     Active Substance: CARBOPLATIN
     Indication: Metastases to peritoneum
     Dosage: UNK, HYPERTHERMIC INTRAPERITONEAL CHEMOTHERAPY
     Route: 033
  2. MITOMYCIN C [Suspect]
     Active Substance: MITOMYCIN
     Indication: Metastases to peritoneum
     Dosage: UNK, HYPERTHERMIC INTRAPERITONEAL CHEMOTHERAPY
     Route: 033

REACTIONS (1)
  - Toxic encephalopathy [Recovered/Resolved]
